FAERS Safety Report 4535956-X (Version None)
Quarter: 2004Q4

REPORT INFORMATION
  Report Type: 
  Country: None (occurrence: None)
  Receive Date: 20041222
  Receipt Date: 20041222
  Transmission Date: 20050328
  Serious: No
  Sender: FDA-Public Use
  Company Number: None

PATIENT
  Sex: Female
  Weight: 62.1927 kg

DRUGS (1)
  1. RITALIN [Suspect]
     Indication: TRAUMATIC BRAIN INJURY
     Dosage: 5 M, 3 TABS PO TID
     Route: 048

REACTIONS (9)
  - ABDOMINAL PAIN UPPER [None]
  - DEPRESSED LEVEL OF CONSCIOUSNESS [None]
  - DISORIENTATION [None]
  - DISTURBANCE IN ATTENTION [None]
  - DIZZINESS [None]
  - DRUG EFFECT DECREASED [None]
  - EDUCATIONAL PROBLEM [None]
  - HEADACHE [None]
  - PHARMACEUTICAL PRODUCT COMPLAINT [None]
